FAERS Safety Report 13361287 (Version 1)
Quarter: 2017Q1

REPORT INFORMATION
  Report Type: Spontaneous
  Country: AU (occurrence: AU)
  Receive Date: 20170322
  Receipt Date: 20170322
  Transmission Date: 20170429
  Serious: Yes (Hospitalization, Other)
  Sender: FDA-Public Use
  Company Number: PHHY2017AU041347

PATIENT
  Sex: Female

DRUGS (1)
  1. ZYKADIA [Suspect]
     Active Substance: CERITINIB
     Indication: NON-SMALL CELL LUNG CANCER METASTATIC
     Dosage: 750 MG, QD
     Route: 065
     Dates: start: 20170215

REACTIONS (9)
  - Oesophageal candidiasis [Unknown]
  - Metastasis [Unknown]
  - Malignant neoplasm progression [Unknown]
  - Nausea [Unknown]
  - Malnutrition [Unknown]
  - Non-small cell lung cancer metastatic [Unknown]
  - Metastases to liver [Unknown]
  - Aphasia [Unknown]
  - Refeeding syndrome [Unknown]

NARRATIVE: CASE EVENT DATE: 20170216
